FAERS Safety Report 7354565-0 (Version None)
Quarter: 2011Q1

REPORT INFORMATION
  Report Type: 
  Country: None (occurrence: None)
  Receive Date: 20110316
  Receipt Date: 20110308
  Transmission Date: 20110831
  Serious: Yes (Death, Hospitalization)
  Sender: FDA-Public Use
  Company Number: DE-JNJFOC-981002-003013786

PATIENT
  Age: 76 Year
  Sex: Female

DRUGS (10)
  1. ACETAMINOPHEN [Suspect]
     Route: 065
  2. DILTIAZEM HCL [Concomitant]
     Indication: ANGINA PECTORIS
     Route: 048
  3. BUFLOMEDIL HYDROCHLORIDE [Concomitant]
     Route: 065
  4. TRAMADOL HYDROCHLORIDE IR [Suspect]
     Indication: FEMORAL NECK FRACTURE
     Route: 041
  5. ULTRAM [Suspect]
     Indication: PRODUCT USED FOR UNKNOWN INDICATION
     Route: 048
  6. PROPOXYPHENE NAPSYLATE [Suspect]
     Indication: PRODUCT USED FOR UNKNOWN INDICATION
     Route: 065
  7. ACETAMINOPHEN [Suspect]
     Indication: PRODUCT USED FOR UNKNOWN INDICATION
     Route: 065
  8. MORPHINE [Suspect]
     Indication: PRODUCT USED FOR UNKNOWN INDICATION
     Route: 065
  9. LEVOFLOXACIN [Suspect]
     Indication: PRODUCT USED FOR UNKNOWN INDICATION
     Route: 065
  10. LORAZEPAM [Concomitant]
     Route: 065

REACTIONS (2)
  - DEATH [None]
  - GRAND MAL CONVULSION [None]
